FAERS Safety Report 12791546 (Version 1)
Quarter: 2016Q3

REPORT INFORMATION
  Report Type: Report from Study
  Country: PL (occurrence: PL)
  Receive Date: 20160929
  Receipt Date: 20160929
  Transmission Date: 20161109
  Serious: Yes (Life-Threatening, Hospitalization)
  Sender: FDA-Public Use
  Company Number: PHHO2005PL022568

PATIENT
  Age: 57 Year
  Sex: Female
  Weight: 54 kg

DRUGS (4)
  1. PLACEBO [Suspect]
     Active Substance: UNSPECIFIED INGREDIENT
     Indication: BREAST CANCER METASTATIC
     Dosage: UNK
     Route: 048
     Dates: start: 20050502, end: 20050520
  2. KETONAL [Concomitant]
     Active Substance: KETOPROFEN
     Indication: BONE PAIN
     Dosage: UNK
     Route: 048
     Dates: start: 20050501, end: 20050520
  3. BONEFOS [Concomitant]
     Active Substance: CLODRONATE DISODIUM
     Indication: BONE PAIN
     Dosage: UNK
     Route: 048
     Dates: start: 20050502, end: 20050520
  4. LETROZOLE. [Suspect]
     Active Substance: LETROZOLE
     Indication: BREAST CANCER METASTATIC
     Dosage: 2.5 MG, QD
     Route: 048
     Dates: start: 20050502, end: 20050520

REACTIONS (1)
  - Gastric ulcer perforation [Recovered/Resolved with Sequelae]

NARRATIVE: CASE EVENT DATE: 20050520
